FAERS Safety Report 17847273 (Version 2)
Quarter: 2020Q2

REPORT INFORMATION
  Report Type: Spontaneous
  Country: DE (occurrence: DE)
  Receive Date: 20200601
  Receipt Date: 20200602
  Transmission Date: 20200714
  Serious: Yes (Other)
  Sender: FDA-Public Use
  Company Number: DE-INCYTE CORPORATION-2020IN004900

PATIENT

DRUGS (1)
  1. JAKAVI [Suspect]
     Active Substance: RUXOLITINIB
     Indication: POLYCYTHAEMIA VERA
     Dosage: 10 MG, BID (ONE TABLET IN THE MORNING AND ONE TABLET IN THE EVENING)
     Route: 065
     Dates: start: 20200210, end: 20200215

REACTIONS (12)
  - Altered state of consciousness [Unknown]
  - Personality change [Recovered/Resolved]
  - White blood cell count increased [Unknown]
  - Memory impairment [Unknown]
  - Fear [Unknown]
  - Haematocrit increased [Unknown]
  - Abnormal behaviour [Unknown]
  - Epistaxis [Unknown]
  - Carotid artery aneurysm [Unknown]
  - Intracranial aneurysm [Unknown]
  - Platelet count increased [Unknown]
  - Unresponsive to stimuli [Unknown]

NARRATIVE: CASE EVENT DATE: 20200211
